FAERS Safety Report 20055016 (Version 1)
Quarter: 2021Q4

REPORT INFORMATION
  Report Type: Spontaneous
  Country: US (occurrence: US)
  Receive Date: 20211110
  Receipt Date: 20211110
  Transmission Date: 20220303
  Serious: No
  Sender: FDA-Public Use
  Company Number: US-BAYER-2021A240187

PATIENT
  Sex: Female

DRUGS (2)
  1. VITRAKVI [Suspect]
     Active Substance: LAROTRECTINIB
  2. VITRAKVI [Suspect]
     Active Substance: LAROTRECTINIB
     Dosage: REDUCED DOSE (25%)

REACTIONS (2)
  - Withdrawal syndrome [None]
  - Pain [None]
